FAERS Safety Report 13710743 (Version 1)
Quarter: 2017Q3

REPORT INFORMATION
  Report Type: Spontaneous
  Country: US (occurrence: US)
  Receive Date: 20170701
  Receipt Date: 20170701
  Transmission Date: 20171127
  Serious: Yes (Hospitalization, Disabling)
  Sender: FDA-Public Use
  Company Number: None

PATIENT
  Age: 66 Year
  Sex: Female
  Weight: 63 kg

DRUGS (1)
  1. XANAX [Suspect]
     Active Substance: ALPRAZOLAM
     Indication: ANXIETY
     Dosage: ?          OTHER STRENGTH:MG/MG;QUANTITY:4 CAPSULE(S);?
     Route: 048

REACTIONS (8)
  - Bradyphrenia [None]
  - Cognitive disorder [None]
  - Tremor [None]
  - Incorrect drug administration duration [None]
  - Dysgeusia [None]
  - Quality of life decreased [None]
  - Anxiety [None]
  - Muscle spasms [None]

NARRATIVE: CASE EVENT DATE: 20170630
